FAERS Safety Report 14047152 (Version 3)
Quarter: 2018Q1

REPORT INFORMATION
  Report Type: Report from Study
  Country: US (occurrence: US)
  Receive Date: 20171005
  Receipt Date: 20180130
  Transmission Date: 20180508
  Serious: Yes (Death, Hospitalization, Other)
  Sender: FDA-Public Use
  Company Number: US-GILEAD-2017-0296263

PATIENT

DRUGS (9)
  1. AMIODARONE [Concomitant]
     Active Substance: AMIODARONE
  2. RANOLAZINE. [Suspect]
     Active Substance: RANOLAZINE
     Indication: VENTRICULAR ARRHYTHMIA
     Route: 065
  3. MIDODRINE [Concomitant]
     Active Substance: MIDODRINE
  4. WARFARIN [Concomitant]
     Active Substance: WARFARIN
  5. MEXITIL [Concomitant]
     Active Substance: MEXILETINE HYDROCHLORIDE
  6. BISOPROLOL [Concomitant]
     Active Substance: BISOPROLOL
  7. ALLOPURINOL. [Concomitant]
     Active Substance: ALLOPURINOL
  8. DIAMICRON [Concomitant]
     Active Substance: GLICLAZIDE
  9. SYNTHROID [Concomitant]
     Active Substance: LEVOTHYROXINE SODIUM

REACTIONS (5)
  - Nausea [Unknown]
  - Ventricular tachycardia [Unknown]
  - Dizziness [Unknown]
  - Cardiogenic shock [Unknown]
  - Cardiac failure [Fatal]

NARRATIVE: CASE EVENT DATE: 20160121
